FAERS Safety Report 9083600 (Version 1)
Quarter: 2013Q1

REPORT INFORMATION
  Report Type: Report from Study
  Country: US (occurrence: US)
  Receive Date: 20130131
  Receipt Date: 20130131
  Transmission Date: 20140127
  Serious: No
  Sender: FDA-Public Use
  Company Number: US-ABBOTT-12P-163-0989675-00

PATIENT
  Age: 44 Year
  Sex: Male

DRUGS (4)
  1. HUMIRA [Suspect]
     Indication: CROHN^S DISEASE
     Dosage: LOADING DOSE
     Dates: start: 20120918
  2. PREDNISONE [Concomitant]
     Indication: CROHN^S DISEASE
  3. CLARITIN OTC [Concomitant]
     Indication: HYPERSENSITIVITY
     Dosage: QD PRN
  4. ATENOLOL [Concomitant]
     Indication: TACHYCARDIA

REACTIONS (1)
  - Sinusitis [Not Recovered/Not Resolved]
